FAERS Safety Report 13112523 (Version 1)
Quarter: 2017Q1

REPORT INFORMATION
  Report Type: Spontaneous
  Country: US (occurrence: US)
  Receive Date: 20170112
  Receipt Date: 20170112
  Transmission Date: 20170428
  Serious: Yes (Other)
  Sender: FDA-Public Use
  Company Number: None

PATIENT
  Age: 29 Year
  Sex: Female
  Weight: 58.5 kg

DRUGS (4)
  1. PREVIFEM [Concomitant]
     Active Substance: ETHINYL ESTRADIOL\NORGESTIMATE
  2. VENLAFAXINE [Suspect]
     Active Substance: VENLAFAXINE HYDROCHLORIDE
     Indication: DEPRESSION
     Dosage: QUANTITY:30 TABLET(S); DAILY; ORAL?
     Route: 048
     Dates: start: 20150122, end: 20170112
  3. VENLAFAXINE [Suspect]
     Active Substance: VENLAFAXINE HYDROCHLORIDE
     Indication: ANXIETY
     Dosage: QUANTITY:30 TABLET(S); DAILY; ORAL?
     Route: 048
     Dates: start: 20150122, end: 20170112
  4. VENLAFAXINE [Suspect]
     Active Substance: VENLAFAXINE HYDROCHLORIDE
     Indication: POST-TRAUMATIC STRESS DISORDER
     Dosage: QUANTITY:30 TABLET(S); DAILY; ORAL?
     Route: 048
     Dates: start: 20150122, end: 20170112

REACTIONS (20)
  - Fatigue [None]
  - Blood cholesterol increased [None]
  - Tremor [None]
  - Constipation [None]
  - Nausea [None]
  - Confusional state [None]
  - Vision blurred [None]
  - Abnormal behaviour [None]
  - Disturbance in attention [None]
  - Crying [None]
  - Decreased appetite [None]
  - Inappropriate affect [None]
  - Tachyphrenia [None]
  - Memory impairment [None]
  - Headache [None]
  - Anxiety [None]
  - Irritability [None]
  - Mental impairment [None]
  - Feeling jittery [None]
  - Dizziness [None]

NARRATIVE: CASE EVENT DATE: 20170112
